FAERS Safety Report 9366606 (Version 3)
Quarter: 2013Q3

REPORT INFORMATION
  Report Type: Spontaneous
  Country: IT (occurrence: IT)
  Receive Date: 20130625
  Receipt Date: 20130912
  Transmission Date: 20140515
  Serious: Yes (Hospitalization, Other)
  Sender: FDA-Public Use
  Company Number: IT-PFIZER INC-2013188305

PATIENT
  Age: 83 Year
  Sex: Male

DRUGS (10)
  1. XANAX [Suspect]
     Indication: DEPRESSION
     Dosage: UNK
     Route: 048
  2. XANAX [Suspect]
     Dosage: 10 UNITS  TOTAL DOSE
     Route: 048
     Dates: start: 20130610, end: 20130610
  3. ZOLPIDEM TARTRATE [Suspect]
     Indication: DEPRESSION
     Dosage: UNK
     Route: 048
  4. ZOLPIDEM TARTRATE [Suspect]
     Dosage: 15 UNITS TOTAL DOSE
     Route: 048
     Dates: start: 20130610, end: 20130610
  5. CITICOLINE [Concomitant]
     Dosage: 500 MG, UNK
     Route: 048
     Dates: start: 20130607, end: 20130610
  6. REMERON [Concomitant]
     Indication: DEPRESSION
     Dosage: UNK
  7. ALIFLUS DISKUS [Concomitant]
     Dosage: UNK
  8. VENTOLIN [Concomitant]
     Dosage: UNK
  9. TRIMEBUTINE MALEATE [Concomitant]
     Dosage: 1 UNIT DOSE
     Route: 048
     Dates: start: 20130607, end: 20130610
  10. SPIRIVA ^BOEHRINGER INGELHEIM^ [Concomitant]
     Dosage: UNK

REACTIONS (7)
  - Off label use [Recovered/Resolved]
  - Overdose [Recovering/Resolving]
  - Intentional self-injury [Recovering/Resolving]
  - Sopor [Recovering/Resolving]
  - Fall [Recovering/Resolving]
  - Face injury [Recovering/Resolving]
  - Wound [Recovering/Resolving]
